FAERS Safety Report 20264387 (Version 1)
Quarter: 2021Q4

REPORT INFORMATION
  Report Type: Other
  Country: US (occurrence: None)
  Receive Date: 20211231
  Receipt Date: 20211231
  Transmission Date: 20220304
  Serious: No
  Sender: FDA-Public Use
  Company Number: US-ROCHE-2993718

PATIENT
  Age: 48 Year
  Sex: Male

DRUGS (1)
  1. OCREVUS [Suspect]
     Active Substance: OCRELIZUMAB
     Indication: Multiple sclerosis
     Dosage: LAST DOT: 22/JUN/2020
     Route: 042
     Dates: start: 20171221

REACTIONS (2)
  - COVID-19 [Not Recovered/Not Resolved]
  - Pyrexia [Recovered/Resolved]

NARRATIVE: CASE EVENT DATE: 20211220
